FAERS Safety Report 6133900-5 (Version None)
Quarter: 2009Q1

REPORT INFORMATION
  Report Type: 
  Country: None (occurrence: None)
  Receive Date: 20090326
  Receipt Date: 20090315
  Transmission Date: 20090719
  Serious: Yes (Other)
  Sender: FDA-Public Use
  Company Number: FR-ELI_LILLY_AND_COMPANY-FR200903004329

PATIENT
  Sex: Female

DRUGS (7)
  1. CYMBALTA [Suspect]
     Indication: DEPRESSION
     Dosage: 60 MG, DAILY (1/D)
     Route: 048
     Dates: start: 20090101
  2. CYMBALTA [Suspect]
     Dosage: 60 MG, DAILY (1/D)
     Route: 048
     Dates: start: 20090201
  3. DEPAKOTE [Concomitant]
     Dosage: 500 MG, 2/D
  4. STILNOX [Concomitant]
     Dosage: 1 D/F, UNK
     Route: 048
  5. AMLODIPINE [Concomitant]
  6. ATACAND [Concomitant]
  7. PRAVASTATIN [Concomitant]

REACTIONS (3)
  - ANGINA PECTORIS [None]
  - BLOOD PRESSURE DIASTOLIC INCREASED [None]
  - THROMBOCYTHAEMIA [None]
